FAERS Safety Report 6552787-X (Version None)
Quarter: 2010Q1

REPORT INFORMATION
  Report Type: 
  Country: None (occurrence: None)
  Receive Date: 20100121
  Receipt Date: 20100105
  Transmission Date: 20100710
  Serious: No
  Sender: FDA-Public Use
  Company Number: A000528435

PATIENT
  Sex: Female

DRUGS (1)
  1. GENTAK [Suspect]
     Dosage: TOPICAL
     Route: 061
     Dates: start: 20091016, end: 20091016

REACTIONS (4)
  - APPLICATION SITE REACTION [None]
  - DERMATITIS CONTACT [None]
  - RASH VESICULAR [None]
  - SCAB [None]
